FAERS Safety Report 23851858 (Version 1)
Quarter: 2024Q2

REPORT INFORMATION
  Report Type: Spontaneous
  Country: US (occurrence: US)
  Receive Date: 20240514
  Receipt Date: 20240514
  Transmission Date: 20240716
  Serious: Yes (Hospitalization)
  Sender: FDA-Public Use
  Company Number: US-AMNEAL PHARMACEUTICALS-2024-AMRX-00887

PATIENT
  Age: 17 Year
  Sex: Female

DRUGS (3)
  1. BUSPIRONE HYDROCHLORIDE [Suspect]
     Active Substance: BUSPIRONE HYDROCHLORIDE
     Indication: Product used for unknown indication
     Dosage: UNK
     Route: 065
     Dates: start: 20240207
  2. DESVENLAFAXINE [Suspect]
     Active Substance: DESVENLAFAXINE
     Indication: Product used for unknown indication
     Dosage: UNK
     Route: 065
     Dates: start: 20240207
  3. AMPHETAMINE [Suspect]
     Active Substance: AMPHETAMINE
     Indication: Attention deficit hyperactivity disorder
     Dosage: CUT THE PATCH IN HALF AND WEAR HALF A PATCH FOR THE FIRST FEW DAYS AND THEN GO TO THE FULL PATCH.
     Route: 062

REACTIONS (5)
  - Psychotic disorder [Unknown]
  - Application site burn [Unknown]
  - Application site pruritus [Unknown]
  - Sleep disorder [Unknown]
  - Depressive symptom [Unknown]

NARRATIVE: CASE EVENT DATE: 20240226
